FAERS Safety Report 16159569 (Version 1)
Quarter: 2019Q2

REPORT INFORMATION
  Report Type: Spontaneous
  Country: US (occurrence: US)
  Receive Date: 20190404
  Receipt Date: 20190404
  Transmission Date: 20190711
  Serious: No
  Sender: FDA-Public Use
  Company Number: US-SA-2019SA088647

PATIENT
  Age: 59 Year
  Sex: Male

DRUGS (1)
  1. AMBIEN [Suspect]
     Active Substance: ZOLPIDEM TARTRATE
     Indication: NARCOLEPSY
     Dosage: 10 MG, QD
     Route: 065
     Dates: start: 1999

REACTIONS (1)
  - Incorrect product administration duration [Unknown]
